FAERS Safety Report 4973421-6 (Version None)
Quarter: 2006Q2

REPORT INFORMATION
  Report Type: 
  Country: None (occurrence: None)
  Receive Date: 20060410
  Receipt Date: 20060331
  Transmission Date: 20061013
  Serious: Yes (Other)
  Sender: FDA-Public Use
  Company Number: 223733

PATIENT
  Age: 47 Year
  Sex: Female
  Weight: 68 kg

DRUGS (15)
  1. ACTIVASE [Suspect]
     Indication: PULMONARY THROMBOSIS
     Dosage: SEE IMAGE
  2. EACA                  (AMINOCAPROIC ACID) [Concomitant]
  3. CRYOPRECIPITATE (ANTIHEMOPHILIC FACTOR) [Concomitant]
  4. PLATELETS (PLATELET CONCENTRATE) [Concomitant]
  5. LACTATED RINGER'S (RINGER'S INJECTION, LACTATED) [Concomitant]
  6. PHENYLEPHRINE                 (PHENYLEPHRINE HYDROCHLORIDE) [Concomitant]
  7. AMIODARONE HCL [Concomitant]
  8. EPINEPHRINE [Concomitant]
  9. NOREPINEPHRINE (NOREPINEPHRINE BITARTRATE) [Concomitant]
  10. MILRINONE (MILRINONE) [Concomitant]
  11. VASOPRESSIN (VASOPRESSIN (INJECTION)) [Concomitant]
  12. MIDAZOLAM HYDROCHLORIDE [Concomitant]
  13. FENTANYL (FENTANYL CITRATE) [Concomitant]
  14. CISATRACURIUM (CISATRACURIUM BESYLATE) [Concomitant]
  15. ISOFLURANE [Concomitant]

REACTIONS (4)
  - ACUTE RESPIRATORY FAILURE [None]
  - DIALYSIS [None]
  - OPERATIVE HAEMORRHAGE [None]
  - RENAL FAILURE ACUTE [None]
